FAERS Safety Report 7546565-2 (Version None)
Quarter: 2011Q2

REPORT INFORMATION
  Report Type: 
  Country: None (occurrence: None)
  Receive Date: 20110614
  Receipt Date: 20110527
  Transmission Date: 20111010
  Serious: Yes (Other)
  Sender: FDA-Public Use
  Company Number: US-BAYER-2011-032291

PATIENT
  Sex: Female
  Weight: 70.295 kg

DRUGS (11)
  1. BENTYL [Concomitant]
     Indication: GASTRIC DISORDER
     Dosage: 10 MG, BID
  2. PROTONIX [Concomitant]
  3. DROSPIRENONE AND ETHINYL ESTRADIOL [Suspect]
     Dosage: UNK
     Dates: start: 20080801, end: 20091201
  4. YASMIN [Suspect]
     Dosage: UNK
     Dates: start: 20070301, end: 20080801
  5. PANTOPRAZOLE [Concomitant]
     Indication: GASTROOESOPHAGEAL REFLUX DISEASE
     Dosage: UNK
     Dates: start: 20080101
  6. PREDNISONE [Concomitant]
     Dosage: UNK
     Dates: start: 20081229
  7. WELLBUTRIN [Concomitant]
  8. CLINDAMYCIN [Concomitant]
     Indication: ACNE
     Dosage: UNK
     Dates: start: 20050101, end: 20100101
  9. DOXYCYCLINE [Concomitant]
     Indication: ACNE
     Dosage: UNK
     Dates: start: 20080101, end: 20100101
  10. MINOCYCLINE HCL [Concomitant]
     Indication: ACNE
     Dosage: UNK
     Dates: start: 20060101
  11. ORTHO TRI-CYCLEN [Concomitant]

REACTIONS (3)
  - GALLBLADDER INJURY [None]
  - ABDOMINAL PAIN UPPER [None]
  - CHOLELITHIASIS [None]
